FAERS Safety Report 7980529-X (Version None)
Quarter: 2011Q4

REPORT INFORMATION
  Report Type: 
  Country: None (occurrence: None)
  Receive Date: 20111214
  Receipt Date: 20111206
  Transmission Date: 20120403
  Serious: Yes (Hospitalization)
  Sender: FDA-Public Use
  Company Number: JP-GLAXOSMITHKLINE-B0767993A

PATIENT
  Age: 56 Year
  Sex: Male
  Weight: 62 kg

DRUGS (12)
  1. IMURAN [Suspect]
     Indication: PRODUCT USED FOR UNKNOWN INDICATION
     Dosage: 100MG PER DAY
     Route: 048
     Dates: end: 20111107
  2. IMURAN [Suspect]
     Dosage: 50MG PER DAY
     Route: 048
     Dates: start: 20111108
  3. ALLOPURINOL [Suspect]
     Indication: PRODUCT USED FOR UNKNOWN INDICATION
     Dosage: 100MG PER DAY
     Route: 048
     Dates: end: 20111028
  4. MICARDIS [Concomitant]
     Route: 048
  5. ITRACONAZOLE [Suspect]
     Dosage: 100MG PER DAY
     Route: 048
  6. LANSOPRAZOLE [Concomitant]
     Dosage: 15MG PER DAY
     Route: 048
  7. URSO 250 [Concomitant]
     Route: 048
  8. MUCODYNE [Concomitant]
     Route: 048
  9. SULFAMETHOXAZOLE AND TRIMETHOPRIM [Suspect]
     Indication: PRODUCT USED FOR UNKNOWN INDICATION
     Dosage: 1IUAX PER DAY
     Route: 048
     Dates: end: 20111028
  10. VERAPAMIL HCL [Concomitant]
     Route: 065
  11. ITRACONAZOLE [Suspect]
     Indication: PRODUCT USED FOR UNKNOWN INDICATION
     Dosage: 200MG PER DAY
     Route: 048
  12. PREDNISOLONE [Concomitant]
     Dosage: 5MG PER DAY
     Route: 048

REACTIONS (3)
  - DRUG INTERACTION [None]
  - ANAEMIA [None]
  - ANAEMIA MEGALOBLASTIC [None]
